FAERS Safety Report 16594708 (Version 1)
Quarter: 2019Q3

REPORT INFORMATION
  Report Type: Spontaneous
  Country: GB (occurrence: GB)
  Receive Date: 20190718
  Receipt Date: 20190718
  Transmission Date: 20191004
  Serious: Yes (Other)
  Sender: FDA-Public Use
  Company Number: GB-ALLERGAN-1929145US

PATIENT
  Sex: Female
  Weight: 90 kg

DRUGS (1)
  1. NITROGLYCERIN - BP [Suspect]
     Active Substance: NITROGLYCERIN
     Indication: PRODUCT USED FOR UNKNOWN INDICATION
     Dosage: 375 MG
     Route: 061
     Dates: start: 20190615

REACTIONS (7)
  - Hyperacusis [Recovering/Resolving]
  - Syncope [Recovering/Resolving]
  - Dizziness [Recovering/Resolving]
  - Vomiting [Recovering/Resolving]
  - Photosensitivity reaction [Recovering/Resolving]
  - Migraine [Recovering/Resolving]
  - Diarrhoea [Recovering/Resolving]

NARRATIVE: CASE EVENT DATE: 20190615
